FAERS Safety Report 9553242 (Version 1)
Quarter: 2013Q3

REPORT INFORMATION
  Report Type: Report from Study
  Country: DE (occurrence: DE)
  Receive Date: 20130925
  Receipt Date: 20130925
  Transmission Date: 20140515
  Serious: Yes (Hospitalization)
  Sender: FDA-Public Use
  Company Number: DE-ABBVIE-13P-062-1149179-00

PATIENT
  Age: 18 Year
  Sex: Male

DRUGS (3)
  1. HUMIRA [Suspect]
     Indication: CROHN^S DISEASE
     Route: 058
     Dates: start: 20120901, end: 201308
  2. HUMIRA [Suspect]
     Dates: start: 201308
  3. CORTISON [Concomitant]
     Indication: PRODUCT USED FOR UNKNOWN INDICATION

REACTIONS (3)
  - Haemorrhage [Recovering/Resolving]
  - Crohn^s disease [Recovering/Resolving]
  - Drug ineffective [Recovering/Resolving]
